FAERS Safety Report 25337572 (Version 1)
Quarter: 2025Q2

REPORT INFORMATION
  Report Type: Spontaneous
  Country: FR (occurrence: FR)
  Receive Date: 20250520
  Receipt Date: 20250520
  Transmission Date: 20250716
  Serious: Yes (Hospitalization, Congenital Anomaly)
  Sender: MYLAN
  Company Number: None

PATIENT
  Sex: Female
  Weight: 3.6 kg

DRUGS (8)
  1. SERTRALINE [Suspect]
     Active Substance: SERTRALINE HYDROCHLORIDE
     Indication: Depression
     Dosage: 25 MILLIGRAM, QD
     Dates: start: 20240604, end: 20250218
  2. SERTRALINE [Suspect]
     Active Substance: SERTRALINE HYDROCHLORIDE
     Dosage: 25 MILLIGRAM, QD
     Dates: start: 20240604, end: 20250218
  3. SERTRALINE [Suspect]
     Active Substance: SERTRALINE HYDROCHLORIDE
     Dosage: 25 MILLIGRAM, QD
     Route: 064
     Dates: start: 20240604, end: 20250218
  4. SERTRALINE [Suspect]
     Active Substance: SERTRALINE HYDROCHLORIDE
     Dosage: 25 MILLIGRAM, QD
     Route: 064
     Dates: start: 20240604, end: 20250218
  5. SERTRALINE [Suspect]
     Active Substance: SERTRALINE HYDROCHLORIDE
     Dosage: 25 MILLIGRAM, QD
     Dates: start: 20240604, end: 20250218
  6. SERTRALINE [Suspect]
     Active Substance: SERTRALINE HYDROCHLORIDE
     Dosage: 25 MILLIGRAM, QD
     Dates: start: 20240604, end: 20250218
  7. SERTRALINE [Suspect]
     Active Substance: SERTRALINE HYDROCHLORIDE
     Dosage: 25 MILLIGRAM, QD
     Route: 064
     Dates: start: 20240604, end: 20250218
  8. SERTRALINE [Suspect]
     Active Substance: SERTRALINE HYDROCHLORIDE
     Dosage: 25 MILLIGRAM, QD
     Route: 064
     Dates: start: 20240604, end: 20250218

REACTIONS (4)
  - Neonatal respiratory distress [Recovered/Resolved]
  - Immature respiratory system [Recovered/Resolved]
  - Laryngomalacia [Not Recovered/Not Resolved]
  - Foetal exposure during pregnancy [Recovered/Resolved]

NARRATIVE: CASE EVENT DATE: 20250218
